FAERS Safety Report 8775920 (Version 1)
Quarter: 2012Q4

REPORT INFORMATION
  Report Type: 
  Country: US (occurrence: US)
  Receive Date: 20120910
  Receipt Date: 20120910
  Transmission Date: 20130627
  Serious: No
  Sender: FDA-Public Use
  Company Number: US-B.I. PHARMACEUTICALS,INC./RIDGEFIELD-2012-BP-22139BP

PATIENT
  Sex: Female

DRUGS (2)
  1. TRADJENTA [Suspect]
     Indication: TYPE 2 DIABETES MELLITUS
     Dosage: 5 mg
     Route: 048
     Dates: start: 20120901, end: 20120903
  2. CHEMOTHERAPY [Concomitant]
     Indication: NEOPLASM MALIGNANT

REACTIONS (2)
  - Asthenia [Recovered/Resolved]
  - Mobility decreased [Recovered/Resolved]
